FAERS Safety Report 16224915 (Version 2)
Quarter: 2019Q2

REPORT INFORMATION
  Report Type: Spontaneous
  Country: US (occurrence: US)
  Receive Date: 20190422
  Receipt Date: 20190522
  Transmission Date: 20190711
  Serious: Yes (Hospitalization, Other)
  Sender: FDA-Public Use
  Company Number: US-SUNOVION-2019SUN001562

PATIENT
  Age: 67 Year
  Sex: Female
  Weight: 83 kg

DRUGS (8)
  1. DIVALPROEX [Concomitant]
     Active Substance: DIVALPROEX SODIUM
     Dosage: 2 DF, QD
  2. EFFEXOR [Concomitant]
     Active Substance: VENLAFAXINE HYDROCHLORIDE
     Dosage: 300 MG
  3. DEPAKOTE [Concomitant]
     Active Substance: DIVALPROEX SODIUM
     Indication: BIPOLAR DISORDER
  4. VYTORIN [Concomitant]
     Active Substance: EZETIMIBE\SIMVASTATIN
     Dosage: 1 DF, QD
     Dates: start: 20190109
  5. ASPIRIN. [Concomitant]
     Active Substance: ASPIRIN
  6. VENLAFAXINE [Concomitant]
     Active Substance: VENLAFAXINE HYDROCHLORIDE
     Dosage: 1 DF, QD
     Dates: start: 20190109
  7. EFFEXOR [Concomitant]
     Active Substance: VENLAFAXINE HYDROCHLORIDE
     Indication: BIPOLAR DISORDER
     Dosage: 150 MG
  8. LATUDA [Suspect]
     Active Substance: LURASIDONE HYDROCHLORIDE
     Indication: BIPOLAR DISORDER
     Dosage: 1 DF, QD (1 PILL PER NIGHT)
     Route: 048

REACTIONS (42)
  - Tremor [Unknown]
  - Abdominal pain upper [Unknown]
  - Oedema [Unknown]
  - Glomerular filtration rate decreased [Unknown]
  - Urinary tract infection [Unknown]
  - Hypopnoea [Unknown]
  - Bipolar disorder [Unknown]
  - Tinnitus [Recovered/Resolved]
  - Aortic arteriosclerosis [Unknown]
  - Leukocytosis [Unknown]
  - Musculoskeletal stiffness [Unknown]
  - Intermittent claudication [Unknown]
  - Myalgia [Unknown]
  - Abdominal discomfort [Unknown]
  - Gallbladder disorder [Unknown]
  - Gait disturbance [Unknown]
  - Arthralgia [Unknown]
  - Pulmonary mass [Unknown]
  - Granuloma [Unknown]
  - Coronary artery disease [Unknown]
  - Asthenia [Unknown]
  - Myocardial infarction [Unknown]
  - Chest discomfort [Unknown]
  - Palpitations [Unknown]
  - Feeling abnormal [Unknown]
  - Headache [Unknown]
  - Flatulence [Unknown]
  - Depression [Unknown]
  - Lichen sclerosus [Unknown]
  - Memory impairment [Unknown]
  - Dizziness [Unknown]
  - Fatigue [Unknown]
  - Pyuria [Unknown]
  - Chest pain [Unknown]
  - Diabetes mellitus [Unknown]
  - Cholecystitis acute [Unknown]
  - Fear of death [Unknown]
  - Cardiac disorder [Unknown]
  - Dysstasia [Unknown]
  - Diarrhoea [Unknown]
  - Hyperlipidaemia [Unknown]
  - Anxiety [Unknown]

NARRATIVE: CASE EVENT DATE: 201812
